FAERS Safety Report 7951104-8 (Version None)
Quarter: 2011Q4

REPORT INFORMATION
  Report Type: 
  Country: None (occurrence: None)
  Receive Date: 20111201
  Receipt Date: 20111118
  Transmission Date: 20120403
  Serious: Yes (Death)
  Sender: FDA-Public Use
  Company Number: BE-ELI_LILLY_AND_COMPANY-BE201111005946

PATIENT
  Age: 59 Year
  Sex: Female

DRUGS (4)
  1. ZYPREXA [Suspect]
     Dosage: 10 MG, QID
  2. ZYPREXA [Suspect]
     Indication: PSYCHOTIC DISORDER
     Dosage: 10 MG, BID
  3. OLANZAPINE [Suspect]
     Indication: PSYCHOTIC DISORDER
     Dosage: 405 MG, SINGLE
  4. MANIPREX [Concomitant]

REACTIONS (3)
  - DEATH [None]
  - OVERDOSE [None]
  - INSOMNIA [None]
